FAERS Safety Report 8836536 (Version 2)
Quarter: 2012Q4

REPORT INFORMATION
  Report Type: Spontaneous
  Country: GB (occurrence: None)
  Receive Date: 20121009
  Receipt Date: 20121022
  Transmission Date: 20130627
  Serious: Yes (Hospitalization)
  Sender: FDA-Public Use
  Company Number: AUR-APL-2012-04206

PATIENT
  Age: 80 Year
  Sex: Female

DRUGS (5)
  1. CETIRIZINE (CETIRIZINE) [Suspect]
     Indication: HAY FEVER
     Route: 048
     Dates: start: 20120912, end: 20120916
  2. ADCAL-D3 (LEKOVIT) [Concomitant]
  3. ASPIRIN (ACETYLSALICYLIC ACID) [Concomitant]
  4. OMEPRAZOLE (OMEPRAZOLE) [Concomitant]
  5. RANITIDINE (RANITIDINE) [Concomitant]

REACTIONS (2)
  - Hyponatraemia [None]
  - Fall [None]
